FAERS Safety Report 18098363 (Version 7)
Quarter: 2020Q3

REPORT INFORMATION
  Report Type: Spontaneous
  Country: US (occurrence: US)
  Receive Date: 20200731
  Receipt Date: 20200921
  Transmission Date: 20201103
  Serious: Yes (Other)
  Sender: FDA-Public Use
  Company Number: US-PFIZER INC-2020290122

PATIENT
  Age: 39 Year
  Sex: Female

DRUGS (5)
  1. IBRANCE [Suspect]
     Active Substance: PALBOCICLIB
     Dosage: 125 MG
     Dates: start: 20200813
  2. IBRANCE [Suspect]
     Active Substance: PALBOCICLIB
     Dosage: 125 MG
     Dates: start: 20200715, end: 202007
  3. IBRANCE [Suspect]
     Active Substance: PALBOCICLIB
     Dosage: 125 MG
     Dates: start: 20200725, end: 202007
  4. IBRANCE [Suspect]
     Active Substance: PALBOCICLIB
     Dosage: 125 MG
     Dates: start: 20200727, end: 2020
  5. IBRANCE [Suspect]
     Active Substance: PALBOCICLIB
     Dosage: 125 MG
     Dates: start: 20200713, end: 202007

REACTIONS (7)
  - Arthropod bite [Unknown]
  - Diarrhoea [Unknown]
  - White blood cell count decreased [Unknown]
  - Stomatitis [Recovering/Resolving]
  - Rash [Unknown]
  - Cellulitis [Unknown]
  - Alopecia [Unknown]

NARRATIVE: CASE EVENT DATE: 2020
